FAERS Safety Report 25416348 (Version 2)
Quarter: 2025Q2

REPORT INFORMATION
  Report Type: Report from Study
  Country: US (occurrence: US)
  Receive Date: 20250610
  Receipt Date: 20250614
  Transmission Date: 20250717
  Serious: Yes (Other)
  Sender: ABBVIE
  Company Number: US-ABBVIE-6314725

PATIENT
  Age: 62 Year
  Sex: Female

DRUGS (1)
  1. SKYRIZI [Suspect]
     Active Substance: RISANKIZUMAB-RZAA
     Indication: Crohn^s disease
     Route: 058
     Dates: start: 2023

REACTIONS (9)
  - Myocardial infarction [Unknown]
  - Psoriasis [Unknown]
  - Skin exfoliation [Unknown]
  - Pain in extremity [Unknown]
  - Dry skin [Unknown]
  - Pain [Unknown]
  - Vomiting [Unknown]
  - Frequent bowel movements [Unknown]
  - Coronary artery occlusion [Unknown]

NARRATIVE: CASE EVENT DATE: 20240101
